FAERS Safety Report 18630173 (Version 1)
Quarter: 2020Q4

REPORT INFORMATION
  Report Type: Spontaneous
  Country: US (occurrence: US)
  Receive Date: 20201217
  Receipt Date: 20201217
  Transmission Date: 20210114
  Serious: No
  Sender: FDA-Public Use
  Company Number: US-PERRIGO-19US019036

PATIENT
  Age: 74 Year
  Sex: Female
  Weight: 58.05 kg

DRUGS (6)
  1. PROGESTERONE. [Concomitant]
     Active Substance: PROGESTERONE
     Indication: HORMONE THERAPY
     Dosage: UNKNOWN, UNKNOWN
     Route: 065
     Dates: start: 1999
  2. BACITRACIN. [Suspect]
     Active Substance: BACITRACIN
     Indication: HORDEOLUM
     Dosage: 1 CM RIBBON, SINGLE
     Route: 047
     Dates: start: 20190718, end: 20190718
  3. BACITRACIN. [Suspect]
     Active Substance: BACITRACIN
     Indication: EYE SWELLING
     Dosage: 1 CM RIBBON, 2 TO 3 TIMES
     Route: 047
     Dates: start: 20190719, end: 20190719
  4. ESTROGEN NOS [Concomitant]
     Active Substance: ESTROGENS
     Indication: HORMONE THERAPY
     Dosage: UNKNOWN, UNKNOWN
     Route: 065
     Dates: start: 1999
  5. BACITRACIN. [Suspect]
     Active Substance: BACITRACIN
     Indication: OCULAR HYPERAEMIA
  6. ARMOUR THYROID [Concomitant]
     Active Substance: THYROID, PORCINE
     Indication: THYROID DISORDER
     Dosage: UNKNOWN, UNKNOWN
     Route: 065
     Dates: start: 1999

REACTIONS (4)
  - Nasal oedema [Recovered/Resolved]
  - Condition aggravated [Recovering/Resolving]
  - Hypersensitivity [Recovering/Resolving]
  - Periorbital swelling [Recovering/Resolving]

NARRATIVE: CASE EVENT DATE: 20190719
